FAERS Safety Report 18955029 (Version 2)
Quarter: 2022Q1

REPORT INFORMATION
  Report Type: Report from Study
  Country: US (occurrence: US)
  Receive Date: 20210301
  Receipt Date: 20220207
  Transmission Date: 20220424
  Serious: Yes (Hospitalization)
  Sender: FDA-Public Use
  Company Number: US-TAKEDA-US202005083

PATIENT
  Age: 82 Year
  Sex: Female

DRUGS (12)
  1. TEDUGLUTIDE [Suspect]
     Active Substance: TEDUGLUTIDE
     Indication: Short-bowel syndrome
     Dosage: 1.1 MILLIGRAM, QD
     Route: 058
     Dates: start: 20191220
  2. TEDUGLUTIDE [Suspect]
     Active Substance: TEDUGLUTIDE
     Indication: Short-bowel syndrome
     Dosage: 1.1 MILLIGRAM, QD
     Route: 058
     Dates: start: 20191220
  3. TEDUGLUTIDE [Suspect]
     Active Substance: TEDUGLUTIDE
     Indication: Short-bowel syndrome
     Dosage: 1.1 MILLIGRAM, QD
     Route: 058
     Dates: start: 20191220
  4. TEDUGLUTIDE [Suspect]
     Active Substance: TEDUGLUTIDE
     Indication: Short-bowel syndrome
     Dosage: 1.1 MILLIGRAM, QD
     Route: 058
     Dates: start: 20191220
  5. TEDUGLUTIDE [Suspect]
     Active Substance: TEDUGLUTIDE
     Indication: Crohn^s disease
     Dosage: 1.1 MILLIGRAM, QD
     Route: 058
     Dates: start: 20200115
  6. TEDUGLUTIDE [Suspect]
     Active Substance: TEDUGLUTIDE
     Indication: Crohn^s disease
     Dosage: 1.1 MILLIGRAM, QD
     Route: 058
     Dates: start: 20200115
  7. TEDUGLUTIDE [Suspect]
     Active Substance: TEDUGLUTIDE
     Indication: Crohn^s disease
     Dosage: 1.1 MILLIGRAM, QD
     Route: 058
     Dates: start: 20200115
  8. TEDUGLUTIDE [Suspect]
     Active Substance: TEDUGLUTIDE
     Indication: Crohn^s disease
     Dosage: 1.1 MILLIGRAM, QD
     Route: 058
     Dates: start: 20200115
  9. TEDUGLUTIDE [Suspect]
     Active Substance: TEDUGLUTIDE
     Indication: Short-bowel syndrome
     Dosage: 1.1 MILLIGRAM, QD
     Route: 058
     Dates: start: 202108
  10. TEDUGLUTIDE [Suspect]
     Active Substance: TEDUGLUTIDE
     Indication: Short-bowel syndrome
     Dosage: 1.1 MILLIGRAM, QD
     Route: 058
     Dates: start: 202108
  11. TEDUGLUTIDE [Suspect]
     Active Substance: TEDUGLUTIDE
     Indication: Short-bowel syndrome
     Dosage: 1.1 MILLIGRAM, QD
     Route: 058
     Dates: start: 202108
  12. TEDUGLUTIDE [Suspect]
     Active Substance: TEDUGLUTIDE
     Indication: Short-bowel syndrome
     Dosage: 1.1 MILLIGRAM, QD
     Route: 058
     Dates: start: 202108

REACTIONS (25)
  - Malaise [Recovering/Resolving]
  - Electrolyte imbalance [Recovering/Resolving]
  - Faeces hard [Unknown]
  - Weight increased [Not Recovered/Not Resolved]
  - Stoma complication [Unknown]
  - Faecal volume increased [Unknown]
  - Depression [Unknown]
  - Hypoaesthesia [Unknown]
  - Flatulence [Unknown]
  - Abdominal pain [Unknown]
  - Abdominal distension [Unknown]
  - Abdominal pain upper [Unknown]
  - Insomnia [Unknown]
  - Abscess oral [Unknown]
  - Noninfective sialoadenitis [Unknown]
  - Malaise [Recovering/Resolving]
  - Nausea [Unknown]
  - Hot flush [Unknown]
  - Asthenia [Unknown]
  - Chills [Unknown]
  - Poor quality sleep [Unknown]
  - Memory impairment [Unknown]
  - Viral infection [Recovering/Resolving]
  - Product dose omission issue [Unknown]
  - Abdominal pain lower [Unknown]

NARRATIVE: CASE EVENT DATE: 20200301
